FAERS Safety Report 15764711 (Version 1)
Quarter: 2018Q4

REPORT INFORMATION
  Report Type: Spontaneous
  Country: US (occurrence: US)
  Receive Date: 20181227
  Receipt Date: 20181227
  Transmission Date: 20190205
  Serious: Yes (Hospitalization)
  Sender: FDA-Public Use
  Company Number: US-ASTELLAS-2018US054516

PATIENT
  Age: 6 Year
  Sex: Male
  Weight: 17 kg

DRUGS (3)
  1. PREDNISONE. [Concomitant]
     Active Substance: PREDNISONE
     Indication: LIVER TRANSPLANT
     Dosage: UNK UNK, UNKNOWN FREQ.
     Route: 065
  2. TACROLIMUS. [Suspect]
     Active Substance: TACROLIMUS
     Indication: LIVER TRANSPLANT
     Dosage: UNK UNK, UNKNOWN FREQ.
     Route: 065
  3. AZATHIOPRINE. [Concomitant]
     Active Substance: AZATHIOPRINE
     Indication: LIVER TRANSPLANT
     Dosage: UNK UNK, UNKNOWN FREQ.
     Route: 065

REACTIONS (5)
  - Intra-abdominal fluid collection [Recovered/Resolved]
  - Diaphragmatic hernia [Recovered/Resolved]
  - Liver function test increased [Recovered/Resolved]
  - Constipation [Recovered/Resolved]
  - Pleural effusion [Recovered/Resolved]
